FAERS Safety Report 8372391-0 (Version None)
Quarter: 2012Q2

REPORT INFORMATION
  Report Type: 
  Country: None (occurrence: None)
  Receive Date: 20120521
  Receipt Date: 20120509
  Transmission Date: 20120825
  Serious: Yes (Hospitalization)
  Sender: FDA-Public Use
  Company Number: DE-VERTEX PHARMACEUTICALS INC.-000000000000000136

PATIENT
  Sex: Male
  Weight: 79 kg

DRUGS (9)
  1. INCIVO (TELAPREVIR) [Suspect]
     Indication: HEPATITIS C
     Dosage: DOSAGE FORM: TABLET
     Route: 048
  2. PROPRANOLOL [Interacting]
     Indication: HAEMORRHAGE
     Dosage: DOSAGE FORM: UNSPECIFIED
     Route: 065
  3. COPEGUS [Concomitant]
     Indication: HEPATITIS C
     Dosage: DOSAGE FORM: UNSPECIFIED
     Route: 048
  4. SPIRONOLACTONE [Interacting]
     Indication: PRODUCT USED FOR UNKNOWN INDICATION
     Dosage: DOSAGE FORM: UNSPECIFIED
     Route: 065
  5. SORMODREN [Interacting]
     Indication: SCHIZOPHRENIA
     Dosage: DOSAGE FORM: UNSPECIFIED
     Route: 065
  6. PEGASYS [Concomitant]
     Indication: HEPATITIS C
     Dosage: DOSAGE FORM: UNSPECIFIED
     Route: 048
  7. ZOPICLON [Interacting]
     Indication: PRODUCT USED FOR UNKNOWN INDICATION
     Dosage: DOSAGE FORM: UNSPECIFIED
     Route: 065
  8. PANTOPRAZOLE [Interacting]
     Indication: HAEMORRHAGE
     Dosage: DOSAGE FORM: UNSPECIFIED
     Route: 065
  9. RISPERIDONE [Interacting]
     Indication: SCHIZOPHRENIA
     Dosage: DOSAGE FORM: UNSPECIFIED
     Route: 048

REACTIONS (9)
  - VOMITING [None]
  - INADEQUATE DIET [None]
  - PYREXIA [None]
  - PANCYTOPENIA [None]
  - DRUG INTERACTION [None]
  - BRONCHOPNEUMONIA [None]
  - DEHYDRATION [None]
  - URINARY TRACT INFECTION [None]
  - GENERAL PHYSICAL HEALTH DETERIORATION [None]
